FAERS Safety Report 24541799 (Version 6)
Quarter: 2025Q1

REPORT INFORMATION
  Report Type: Report from Study
  Country: US (occurrence: US)
  Receive Date: 20241023
  Receipt Date: 20250131
  Transmission Date: 20250409
  Serious: No
  Sender: SUNOVION
  Company Number: US-SMPA-2024SPA004031AA

PATIENT

DRUGS (2)
  1. ORGOVYX [Suspect]
     Active Substance: RELUGOLIX
     Indication: Prostate cancer
     Route: 048
     Dates: start: 20241001, end: 20241001
  2. ORGOVYX [Suspect]
     Active Substance: RELUGOLIX
     Dosage: 120 MG, QD
     Route: 048
     Dates: start: 20241002

REACTIONS (12)
  - Post procedural complication [Recovering/Resolving]
  - Lower gastrointestinal haemorrhage [Recovering/Resolving]
  - Joint injury [Unknown]
  - Blood pressure decreased [Unknown]
  - Seasonal allergy [Unknown]
  - Blood pressure increased [Unknown]
  - Fall [Unknown]
  - Illness [Recovering/Resolving]
  - Pollakiuria [Unknown]
  - Bowel movement irregularity [Recovering/Resolving]
  - Dizziness [Unknown]
  - Diarrhoea [Unknown]
